FAERS Safety Report 16006891 (Version 1)
Quarter: 2019Q1

REPORT INFORMATION
  Report Type: Spontaneous
  Country: US (occurrence: US)
  Receive Date: 20190222
  Receipt Date: 20190222
  Transmission Date: 20190418
  Serious: No
  Sender: FDA-Public Use
  Company Number: US-ASTRAZENECA-2019SE30107

PATIENT

DRUGS (1)
  1. PRILOSEC OTC [Suspect]
     Active Substance: OMEPRAZOLE MAGNESIUM
     Indication: HYPERCHLORHYDRIA
     Route: 048
     Dates: end: 201712

REACTIONS (7)
  - Chronic kidney disease [Unknown]
  - Rebound effect [Unknown]
  - Pain [Unknown]
  - Product use in unapproved indication [Unknown]
  - Off label use [Unknown]
  - Drug dependence [Unknown]
  - Hyperchlorhydria [Unknown]
